FAERS Safety Report 6217973-7 (Version None)
Quarter: 2009Q2

REPORT INFORMATION
  Report Type: 
  Country: None (occurrence: None)
  Receive Date: 20090608
  Receipt Date: 20090603
  Transmission Date: 20091009
  Serious: Yes (Life-Threatening)
  Sender: FDA-Public Use
  Company Number: CA-JNJFOC-20090505122

PATIENT
  Sex: Male
  Weight: 65 kg

DRUGS (9)
  1. DURAGESIC-100 [Suspect]
     Route: 062
  2. DURAGESIC-100 [Suspect]
     Indication: PAIN
     Route: 062
  3. GRANISETRON HCL [Concomitant]
     Indication: NAUSEA
  4. HEPARIN [Concomitant]
     Indication: ANTICOAGULANT THERAPY
     Route: 058
  5. LEVOTHYROXINE [Concomitant]
     Indication: HYPOTHYROIDISM
  6. PANTOPRAZOLE SODIUM [Concomitant]
     Indication: DYSPEPSIA
  7. PREGABALIN [Concomitant]
     Indication: NEURALGIA
  8. PHENAZOPYRIDINE HCL TAB [Concomitant]
     Indication: DYSURIA
  9. HYDROMORPHONE [Concomitant]

REACTIONS (5)
  - MIOSIS [None]
  - PAIN [None]
  - PRODUCT QUALITY ISSUE [None]
  - SOMNOLENCE [None]
  - WRONG TECHNIQUE IN DRUG USAGE PROCESS [None]
